FAERS Safety Report 10026270 (Version 1)
Quarter: 2014Q1

REPORT INFORMATION
  Report Type: Spontaneous
  Country: US (occurrence: US)
  Receive Date: 20140320
  Receipt Date: 20140320
  Transmission Date: 20141002
  Serious: No
  Sender: FDA-Public Use
  Company Number: US-009507513-1403USA006886

PATIENT
  Age: 49 Year
  Sex: Male

DRUGS (1)
  1. JANUVIA [Suspect]
     Dosage: 1 PILL /1 DAY
     Route: 048
     Dates: start: 2008, end: 2009

REACTIONS (1)
  - Adverse event [Recovered/Resolved with Sequelae]
